FAERS Safety Report 25481542 (Version 3)
Quarter: 2025Q4

REPORT INFORMATION
  Report Type: Report from Study
  Country: US (occurrence: US)
  Receive Date: 20250626
  Receipt Date: 20251014
  Transmission Date: 20260117
  Serious: Yes (Other)
  Sender: NOVARTIS
  Company Number: US-002147023-NVSC2025US100698

PATIENT
  Sex: Female

DRUGS (1)
  1. COSENTYX [Suspect]
     Active Substance: SECUKINUMAB
     Indication: Product used for unknown indication
     Dosage: 300 MG, QMO (300 MG/2ML) (APPROXIMATELY 7 TO 8 MONTHS AGO)
     Route: 065
     Dates: end: 20250415

REACTIONS (5)
  - Rectal cancer stage IV [Unknown]
  - Injection site pain [Unknown]
  - Throat clearing [Unknown]
  - Scar [Unknown]
  - Incorrect dose administered [Unknown]
